FAERS Safety Report 7323043-7 (Version None)
Quarter: 2011Q1

REPORT INFORMATION
  Report Type: 
  Country: None (occurrence: None)
  Receive Date: 20110301
  Receipt Date: 20110228
  Transmission Date: 20110831
  Serious: Yes (Other)
  Sender: FDA-Public Use
  Company Number: PHHY2010US76054

PATIENT
  Sex: Female
  Weight: 76 kg

DRUGS (8)
  1. PREDNISONE [Concomitant]
     Dosage: 5 MG, QD
     Route: 048
  2. CALCIUM WITH VITAMIN D [Concomitant]
  3. NEORAL [Suspect]
     Indication: TRANSPLANT
     Dosage: UNK
  4. PANTOPRAZOLE [Concomitant]
     Dosage: 40MG, QD
     Route: 048
  5. ASPIRIN [Concomitant]
     Dosage: 81MG, QD
     Route: 048
  6. METOPROLOL SUCCINATE EXTENDED RELEASE [Concomitant]
     Indication: HYPERTENSION
     Dosage: 25MG, QD
     Route: 048
  7. NIFEPIDINE EXTENDED RELEASE [Concomitant]
     Indication: HYPERTENSION
     Dosage: 60 MG, QD
     Route: 048
  8. AZATHIOPRINE [Concomitant]
     Indication: TRANSPLANT
     Dosage: 125MG, QD
     Route: 048

REACTIONS (2)
  - ABORTION SPONTANEOUS [None]
  - DRUG EXPOSURE DURING PREGNANCY [None]
